FAERS Safety Report 9203677 (Version 4)
Quarter: 2013Q3

REPORT INFORMATION
  Report Type: Spontaneous
  Country: US (occurrence: US)
  Receive Date: 20130402
  Receipt Date: 20130827
  Transmission Date: 20140515
  Serious: Yes (Other)
  Sender: FDA-Public Use
  Company Number: US-UCBSA-081640

PATIENT
  Age: 55 Year
  Sex: Female
  Weight: 84.82 kg

DRUGS (17)
  1. CIMZIA [Suspect]
     Indication: CROHN^S DISEASE
     Route: 058
     Dates: start: 20110601
  2. VITAMIN D [Concomitant]
     Indication: BONE DISORDER
     Dosage: DOSE: 50,000 UNITS, 1 WEEKLY X 3 MONTHS
     Dates: start: 20130219
  3. OMEPRAZOLE [Concomitant]
     Indication: ABDOMINAL PAIN UPPER
  4. FENTANYL [Concomitant]
     Indication: PAIN
     Dosage: 100 MCG
  5. FLUOXETINE HCL [Concomitant]
     Indication: DEPRESSION
  6. GABAPENTIN [Concomitant]
     Indication: NEURALGIA
  7. HYDROCODONE-ACETAMINOPHEN [Concomitant]
     Indication: PAIN
     Dosage: 5/25 1 TO 2 EVERY 4 TO 6 HOURS
  8. FELDENE [Concomitant]
     Indication: ARTHRITIS
  9. IMURAN [Concomitant]
     Indication: ABDOMINAL PAIN UPPER
     Dosage: 50 MG. 2 1/ DAILY
  10. ATIVAN [Concomitant]
     Indication: DEPRESSION
  11. ATIVAN [Concomitant]
     Indication: PANIC ATTACK
  12. ALENDRONATE SODIUM [Concomitant]
     Indication: BONE DISORDER
     Dates: start: 201103
  13. ATENOLOL [Concomitant]
     Indication: CARDIAC DISORDER
  14. CALCIUM [Concomitant]
     Indication: BONE DISORDER
     Dosage: 600 + TABS
  15. COMPAZINE [Concomitant]
     Indication: NAUSEA
  16. COMPAZINE [Concomitant]
     Indication: VOMITING
  17. BENTYL [Concomitant]
     Indication: MUSCLE SPASMS
     Dosage: 20 MG. 1-2 EVERY 4 HOURS..

REACTIONS (2)
  - Factor V Leiden mutation [Not Recovered/Not Resolved]
  - Vitamin K increased [Not Recovered/Not Resolved]
